FAERS Safety Report 4267170-X (Version None)
Quarter: 2004Q1

REPORT INFORMATION
  Report Type: 
  Country: None (occurrence: None)
  Receive Date: 20040107
  Receipt Date: 20031211
  Transmission Date: 20041129
  Serious: Yes (Hospitalization)
  Sender: FDA-Public Use
  Company Number: F01200301445

PATIENT
  Age: 62 Year
  Sex: Female

DRUGS (4)
  1. (FONDAPARINUX SODIUM) - SOLUTION - UNIT DOSE : UNKNOWN [Suspect]
     Indication: SURGERY
     Dosage: 2.5 MG
     Route: 058
     Dates: start: 20031105, end: 20031209
  2. CO-RENITEC (ENALAPRIL MALEATE / HYDROCHLOROTHIAZIDE) [Concomitant]
  3. ENALAPRIL MALEATE [Concomitant]
  4. AUGMENTIN [Concomitant]

REACTIONS (2)
  - INCISION SITE HAEMORRHAGE [None]
  - WOUND NECROSIS [None]
